FAERS Safety Report 9693697 (Version 2)
Quarter: 2014Q1

REPORT INFORMATION
  Report Type: Spontaneous
  Country: AU (occurrence: AU)
  Receive Date: 20131118
  Receipt Date: 20140328
  Transmission Date: 20141002
  Serious: Yes (Hospitalization, Other)
  Sender: FDA-Public Use
  Company Number: AU-009507513-1311AUS005685

PATIENT
  Age: 50 Year
  Sex: Female

DRUGS (1)
  1. SAPHRIS [Suspect]
     Indication: BIPOLAR I DISORDER
     Dosage: 10 MG, ONCE
     Route: 060
     Dates: start: 20131115, end: 201311

REACTIONS (6)
  - Agitation [Unknown]
  - Hyporesponsive to stimuli [Unknown]
  - Speech disorder [Unknown]
  - Sedation [Unknown]
  - Akathisia [Unknown]
  - Anaphylactic reaction [Unknown]
